FAERS Safety Report 4805163-1 (Version None)
Quarter: 2005Q4

REPORT INFORMATION
  Report Type: 
  Country: None (occurrence: None)
  Receive Date: 20051020
  Receipt Date: 20051010
  Transmission Date: 20060501
  Serious: Yes (Death, Hospitalization)
  Sender: FDA-Public Use
  Company Number: US-ABBOTT-05P-163-0314047-00

PATIENT
  Age: 49 Year
  Sex: Female

DRUGS (1)
  1. VALPROIC ACID [Suspect]
     Indication: DRUG USE FOR UNKNOWN INDICATION
     Dosage: 400 TABLETS

REACTIONS (11)
  - AMMONIA INCREASED [None]
  - BLOOD PH DECREASED [None]
  - BLOOD PRESSURE DECREASED [None]
  - COMA [None]
  - COMPLETED SUICIDE [None]
  - GENERAL PHYSICAL HEALTH DETERIORATION [None]
  - ILEUS [None]
  - INTENTIONAL DRUG MISUSE [None]
  - OVERDOSE [None]
  - PO2 DECREASED [None]
  - PUPIL FIXED [None]
